FAERS Safety Report 4321920-2 (Version None)
Quarter: 2004Q1

REPORT INFORMATION
  Report Type: 
  Country: None (occurrence: None)
  Receive Date: 20040319
  Receipt Date: 20031211
  Transmission Date: 20041129
  Serious: No
  Sender: FDA-Public Use
  Company Number: 200314401

PATIENT
  Age: 74 Year
  Sex: Female
  Weight: 56.6996 kg

DRUGS (5)
  1. LUMIGAN [Suspect]
     Indication: GLAUCOMA
     Dosage: 1 DROP QHS EYE
     Route: 047
     Dates: start: 20031208
  2. CARDIZEM CD [Concomitant]
  3. ASPIRIN [Concomitant]
  4. PROTONIX [Concomitant]
  5. PREVACID [Concomitant]

REACTIONS (3)
  - COUGH [None]
  - MYALGIA [None]
  - OESOPHAGEAL PAIN [None]
